FAERS Safety Report 15427968 (Version 1)
Quarter: 2018Q3

REPORT INFORMATION
  Report Type: Spontaneous
  Country: US (occurrence: US)
  Receive Date: 20180926
  Receipt Date: 20180926
  Transmission Date: 20181010
  Serious: No
  Sender: FDA-Public Use
  Company Number: US-GLENMARK PHARMACEUTICALS-2018GMK037066

PATIENT

DRUGS (5)
  1. CIPROFLOXACIN. [Concomitant]
     Active Substance: CIPROFLOXACIN
     Indication: COLITIS
     Dosage: 500 MG, BID
     Route: 065
  2. ONDANSETRON ORALLY DISINTEGRATING TABLETS [Suspect]
     Active Substance: ONDANSETRON
     Indication: VOMITING
     Dosage: 4 MG, TID
     Route: 048
     Dates: start: 20180802, end: 20180809
  3. ONDANSETRON ORALLY DISINTEGRATING TABLETS [Suspect]
     Active Substance: ONDANSETRON
     Indication: ABDOMINAL PAIN UPPER
  4. NORVASTATIN [Concomitant]
     Indication: BLOOD CHOLESTEROL INCREASED
     Dosage: 40 MG, OD; BEDTIME
     Route: 065
  5. METRONIDAZOLE. [Concomitant]
     Active Substance: METRONIDAZOLE
     Indication: COLITIS
     Dosage: UNK
     Route: 065

REACTIONS (6)
  - Feeding disorder [Recovered/Resolved]
  - Product taste abnormal [Unknown]
  - Dysgeusia [Recovered/Resolved]
  - Product use in unapproved indication [Unknown]
  - Trichoglossia [Recovered/Resolved]
  - Tongue coated [Recovered/Resolved]

NARRATIVE: CASE EVENT DATE: 20180802
